FAERS Safety Report 5083511-8 (Version None)
Quarter: 2006Q3

REPORT INFORMATION
  Report Type: 
  Country: None (occurrence: None)
  Receive Date: 20060818
  Receipt Date: 20060803
  Transmission Date: 20061208
  Serious: Yes (Other)
  Sender: FDA-Public Use
  Company Number: US-JNJFOC-20060803572

PATIENT
  Sex: Female

DRUGS (9)
  1. IBUPROFEN [Suspect]
     Indication: SWELLING
  2. CHANTIX [Interacting]
  3. CHANTIX [Interacting]
  4. CHANTIX [Interacting]
     Indication: SMOKING CESSATION THERAPY
  5. PROVIGIL [Interacting]
     Indication: NARCOLEPSY
  6. NORCO [Interacting]
     Indication: NECK PAIN
  7. UNSPECIFIED MEDICATIONS [Concomitant]
     Indication: DRUG USE FOR UNKNOWN INDICATION
  8. UNSPECIFIED STOOL SOFTENER [Concomitant]
     Indication: CONSTIPATION
  9. CORRECTOL [Concomitant]
     Indication: CONSTIPATION

REACTIONS (4)
  - CONSTIPATION [None]
  - DRUG INTERACTION [None]
  - FLATULENCE [None]
  - NARCOLEPSY [None]
